FAERS Safety Report 17280942 (Version 3)
Quarter: 2020Q1

REPORT INFORMATION
  Report Type: Spontaneous
  Country: JP (occurrence: JP)
  Receive Date: 20200117
  Receipt Date: 20200211
  Transmission Date: 20200409
  Serious: Yes (Other)
  Sender: FDA-Public Use
  Company Number: JP-ASTELLAS-2020JP000486

PATIENT
  Age: 0 Day
  Sex: Female
  Weight: 3 kg

DRUGS (11)
  1. PROGRAF [Suspect]
     Active Substance: TACROLIMUS
     Route: 064
     Dates: start: 20181013, end: 20181015
  2. LIALDA [Concomitant]
     Active Substance: MESALAMINE
     Indication: FOETAL EXPOSURE DURING PREGNANCY
     Route: 064
     Dates: start: 20181001
  3. PROGRAF [Suspect]
     Active Substance: TACROLIMUS
     Route: 064
     Dates: start: 20181023, end: 20181119
  4. PROGRAF [Suspect]
     Active Substance: TACROLIMUS
     Route: 064
     Dates: start: 20181016, end: 20181018
  5. PROGRAF [Suspect]
     Active Substance: TACROLIMUS
     Route: 064
     Dates: start: 20181120, end: 20181206
  6. PROGRAF [Suspect]
     Active Substance: TACROLIMUS
     Route: 064
     Dates: start: 20181207, end: 20181213
  7. PROGRAF [Suspect]
     Active Substance: TACROLIMUS
     Route: 064
     Dates: start: 20181011, end: 20181012
  8. PROGRAF [Suspect]
     Active Substance: TACROLIMUS
     Route: 064
     Dates: start: 20181214, end: 20190110
  9. PROGRAF [Suspect]
     Active Substance: TACROLIMUS
     Route: 064
     Dates: start: 20181019, end: 20181022
  10. PROGRAF [Suspect]
     Active Substance: TACROLIMUS
     Indication: FOETAL EXPOSURE DURING PREGNANCY
     Route: 064
     Dates: start: 20180927, end: 20181010
  11. SIMPONI [Concomitant]
     Active Substance: GOLIMUMAB
     Indication: FOETAL EXPOSURE DURING PREGNANCY
     Route: 064
     Dates: start: 20180921

REACTIONS (1)
  - Neonatal asphyxia [Recovered/Resolved]

NARRATIVE: CASE EVENT DATE: 20190511
